FAERS Safety Report 5326730-5 (Version None)
Quarter: 2007Q2

REPORT INFORMATION
  Report Type: 
  Country: None (occurrence: None)
  Receive Date: 20070516
  Receipt Date: 20070507
  Transmission Date: 20071010
  Serious: Yes (Life-Threatening)
  Sender: FDA-Public Use
  Company Number: DE-SHR-DE-2007-006537

PATIENT
  Age: 34 Year
  Sex: Female
  Weight: 73 kg

DRUGS (4)
  1. ULTRAVIST 240 [Suspect]
     Indication: ANGIOGRAM
     Dosage: 20 ML, 1 DOSE
     Route: 042
     Dates: start: 20040407, end: 20040407
  2. METHYLPREDNISOLONE [Concomitant]
  3. FENISTIL [Concomitant]
  4. TYZANOL [Concomitant]
     Route: 058

REACTIONS (9)
  - DISTURBANCE IN ATTENTION [None]
  - DYSPNOEA [None]
  - FEELING HOT [None]
  - HYPERSENSITIVITY [None]
  - MICTURITION URGENCY [None]
  - OEDEMA MUCOSAL [None]
  - RESTLESSNESS [None]
  - SKIN SWELLING [None]
  - SWOLLEN TONGUE [None]
